FAERS Safety Report 16814584 (Version 1)
Quarter: 2019Q3

REPORT INFORMATION
  Report Type: Spontaneous
  Country: FR (occurrence: FR)
  Receive Date: 20190917
  Receipt Date: 20190917
  Transmission Date: 20191005
  Serious: Yes (Other)
  Sender: FDA-Public Use
  Company Number: FR-TEVA-2019-FR-1106912

PATIENT
  Sex: Female
  Weight: 52 kg

DRUGS (7)
  1. AROMASINE 25 MG, COMPRIME ENROBE [Suspect]
     Active Substance: EXEMESTANE
     Indication: BREAST CANCER
     Dosage: 25 MILLIGRAM PER DAY
     Route: 048
     Dates: start: 201902, end: 201903
  2. LEVOTHYROX [Concomitant]
     Active Substance: LEVOTHYROXINE
     Indication: HYPOTHYROIDISM
     Dosage: 1-0-0 (82.5 MICROGRAM PER DAY)
     Route: 048
     Dates: start: 2008
  3. PACLITAXEL. [Suspect]
     Active Substance: PACLITAXEL
     Indication: BREAST CANCER
     Dosage: 116 MILLIGRAM, 1 CYCLICAL
     Route: 042
     Dates: start: 20180823, end: 20181018
  4. EPIRUBICINE MEDAC [Suspect]
     Active Substance: EPIRUBICIN HYDROCHLORIDE
     Indication: BREAST CANCER
     Dosage: 144 MILLIGRAM, 1 CYCLICAL
     Route: 042
     Dates: start: 20180531, end: 20180712
  5. CYCLOPHOSPHAMIDE SANDOZ [Suspect]
     Active Substance: CYCLOPHOSPHAMIDE
     Indication: BREAST CANCER
     Dosage: 720 MILLIGRAM, 1 CYCLICAL
     Route: 042
     Dates: start: 20180531, end: 20180712
  6. ANASTROZOLE. [Suspect]
     Active Substance: ANASTROZOLE
     Indication: BREAST CANCER
     Dosage: 1 CP/DAY (1 MILLIGRAM)
     Route: 048
     Dates: start: 201901, end: 201902
  7. TAXOTERE [Suspect]
     Active Substance: DOCETAXEL
     Indication: BREAST CANCER
     Dosage: 109 MILLIGRAM, 1 CYCLICAL
     Route: 042
     Dates: start: 20180801, end: 20180801

REACTIONS (2)
  - Dyspnoea [Not Recovered/Not Resolved]
  - Myocardial ischaemia [Not Recovered/Not Resolved]

NARRATIVE: CASE EVENT DATE: 2018
